FAERS Safety Report 10974082 (Version 1)
Quarter: 2015Q1

REPORT INFORMATION
  Report Type: Spontaneous
  Country: None (occurrence: None)
  Receive Date: 20150226
  Receipt Date: 20150226
  Transmission Date: 20150721
  Serious: No
  Sender: FDA-Public Use
  Company Number: TPA2009A00947

PATIENT
  Age: 76 Year
  Sex: Male

DRUGS (6)
  1. AMLODIPINE [Concomitant]
     Active Substance: AMLODIPINE BESYLATE
  2. COREG [Concomitant]
     Active Substance: CARVEDILOL
  3. DIOVAN [Concomitant]
     Active Substance: VALSARTAN
  4. COLCHICINE. [Concomitant]
     Active Substance: COLCHICINE
  5. ULORIC [Suspect]
     Active Substance: FEBUXOSTAT
     Route: 048
     Dates: end: 20090505
  6. HCTZ (HYDROCHLOROTHIAZIDE) [Concomitant]
     Active Substance: HYDROCHLOROTHIAZIDE

REACTIONS (1)
  - Blood creatinine increased [None]
